FAERS Safety Report 23448741 (Version 1)
Quarter: 2024Q1

REPORT INFORMATION
  Report Type: Spontaneous
  Country: US (occurrence: US)
  Receive Date: 20240127
  Receipt Date: 20240127
  Transmission Date: 20240410
  Serious: Yes (Hospitalization, Other)
  Sender: FDA-Public Use
  Company Number: US-Accord-402841

PATIENT
  Age: 66 Year
  Sex: Male
  Weight: 69.0 kg

DRUGS (80)
  1. FLUOROURACIL [Suspect]
     Active Substance: FLUOROURACIL
     Indication: Colorectal cancer
     Dosage: SINGLE
     Route: 042
     Dates: start: 20221129, end: 20221129
  2. OXALIPLATIN [Suspect]
     Active Substance: OXALIPLATIN
     Indication: Colorectal cancer
     Route: 042
     Dates: start: 20221129, end: 20221129
  3. LEUCOVORIN [Suspect]
     Active Substance: LEUCOVORIN\LEUCOVORIN CALCIUM
     Indication: Colorectal cancer
     Route: 042
     Dates: start: 20221129, end: 20221129
  4. BEVACIZUMAB [Suspect]
     Active Substance: BEVACIZUMAB
     Indication: Colorectal cancer
     Dosage: SINGLE
     Route: 042
     Dates: start: 20221129, end: 20221129
  5. ZIMBERELIMAB [Concomitant]
     Active Substance: ZIMBERELIMAB
     Indication: Colorectal cancer
     Route: 042
     Dates: start: 20221129, end: 20221129
  6. ALPRAZOLAM [Concomitant]
     Active Substance: ALPRAZOLAM
     Dates: start: 19740701
  7. RISPERIDONE [Concomitant]
     Active Substance: RISPERIDONE
     Dates: start: 20221130
  8. COMPAZINE [Concomitant]
     Active Substance: PROCHLORPERAZINE MALEATE
     Dates: start: 20221130
  9. MIRALAX [Concomitant]
     Active Substance: POLYETHYLENE GLYCOL 3350
     Dates: start: 20230822
  10. TRAMADOL [Concomitant]
     Active Substance: TRAMADOL\TRAMADOL HYDROCHLORIDE
     Dates: start: 20231107, end: 20231227
  11. SENNA [Concomitant]
     Active Substance: SENNA LEAF\SENNOSIDES\SENNOSIDES A AND B
     Dosage: IV FLUID
     Dates: start: 20231204
  12. CIPROFLOXACIN [Concomitant]
     Active Substance: CIPROFLOXACIN
     Dates: start: 20231227
  13. SODIUM CHLORIDE [Concomitant]
     Active Substance: SODIUM CHLORIDE
     Dosage: 0.9 %
     Dates: start: 20231227, end: 20231227
  14. OXYCODONE [Concomitant]
     Active Substance: OXYCODONE\OXYCODONE HYDROCHLORIDE
     Dates: start: 20231227
  15. LEUCOVORIN [Suspect]
     Active Substance: LEUCOVORIN\LEUCOVORIN CALCIUM
     Indication: Colorectal cancer
     Route: 042
     Dates: start: 20221213, end: 20221213
  16. LEUCOVORIN [Suspect]
     Active Substance: LEUCOVORIN\LEUCOVORIN CALCIUM
     Indication: Colorectal cancer
     Route: 042
     Dates: start: 20221228, end: 20221228
  17. LEUCOVORIN [Suspect]
     Active Substance: LEUCOVORIN\LEUCOVORIN CALCIUM
     Indication: Colorectal cancer
     Route: 042
     Dates: start: 20230110, end: 20230110
  18. LEUCOVORIN [Suspect]
     Active Substance: LEUCOVORIN\LEUCOVORIN CALCIUM
     Indication: Colorectal cancer
     Route: 042
     Dates: start: 20230207, end: 20230207
  19. LEUCOVORIN [Suspect]
     Active Substance: LEUCOVORIN\LEUCOVORIN CALCIUM
     Indication: Colorectal cancer
     Route: 042
     Dates: start: 20230221, end: 20230221
  20. LEUCOVORIN [Suspect]
     Active Substance: LEUCOVORIN\LEUCOVORIN CALCIUM
     Indication: Colorectal cancer
     Route: 042
     Dates: start: 20230404, end: 20230404
  21. OXALIPLATIN [Suspect]
     Active Substance: OXALIPLATIN
     Indication: Colorectal cancer
     Route: 042
     Dates: start: 20221213, end: 20221213
  22. OXALIPLATIN [Suspect]
     Active Substance: OXALIPLATIN
     Indication: Colorectal cancer
     Route: 042
     Dates: start: 20221228, end: 20221228
  23. OXALIPLATIN [Suspect]
     Active Substance: OXALIPLATIN
     Indication: Colorectal cancer
     Route: 042
     Dates: start: 20230110, end: 20230110
  24. OXALIPLATIN [Suspect]
     Active Substance: OXALIPLATIN
     Indication: Colorectal cancer
     Route: 042
     Dates: start: 20230207, end: 20230207
  25. OXALIPLATIN [Suspect]
     Active Substance: OXALIPLATIN
     Indication: Colorectal cancer
     Route: 042
     Dates: start: 20230221, end: 20230221
  26. OXALIPLATIN [Suspect]
     Active Substance: OXALIPLATIN
     Indication: Colorectal cancer
     Route: 042
     Dates: start: 20230307, end: 20230307
  27. OXALIPLATIN [Suspect]
     Active Substance: OXALIPLATIN
     Indication: Colorectal cancer
     Route: 042
     Dates: start: 20230404, end: 20230404
  28. OXALIPLATIN [Suspect]
     Active Substance: OXALIPLATIN
     Indication: Colorectal cancer
     Route: 042
     Dates: start: 20230425, end: 20230425
  29. OXALIPLATIN [Suspect]
     Active Substance: OXALIPLATIN
     Indication: Colorectal cancer
     Route: 042
     Dates: start: 20230509, end: 20230509
  30. OXALIPLATIN [Suspect]
     Active Substance: OXALIPLATIN
     Indication: Colorectal cancer
     Route: 042
     Dates: start: 20230523, end: 20230523
  31. ZIMBERELIMAB [Concomitant]
     Active Substance: ZIMBERELIMAB
     Indication: Colorectal cancer
     Route: 042
     Dates: start: 20221228, end: 20221228
  32. ZIMBERELIMAB [Concomitant]
     Active Substance: ZIMBERELIMAB
     Indication: Colorectal cancer
     Route: 042
     Dates: start: 20230207, end: 20230207
  33. ZIMBERELIMAB [Concomitant]
     Active Substance: ZIMBERELIMAB
     Indication: Colorectal cancer
     Route: 042
     Dates: start: 20230307, end: 20230307
  34. ZIMBERELIMAB [Concomitant]
     Active Substance: ZIMBERELIMAB
     Indication: Colorectal cancer
     Route: 042
     Dates: start: 20230404, end: 20230404
  35. ZIMBERELIMAB [Concomitant]
     Active Substance: ZIMBERELIMAB
     Indication: Colorectal cancer
     Route: 042
     Dates: start: 20230509, end: 20230509
  36. ZIMBERELIMAB [Concomitant]
     Active Substance: ZIMBERELIMAB
     Indication: Colorectal cancer
     Route: 042
     Dates: start: 20230627, end: 20230627
  37. ZIMBERELIMAB [Concomitant]
     Active Substance: ZIMBERELIMAB
     Indication: Colorectal cancer
     Route: 042
     Dates: start: 20230725, end: 20230725
  38. ZIMBERELIMAB [Concomitant]
     Active Substance: ZIMBERELIMAB
     Indication: Colorectal cancer
     Route: 042
     Dates: start: 20230822, end: 20230822
  39. ZIMBERELIMAB [Concomitant]
     Active Substance: ZIMBERELIMAB
     Indication: Colorectal cancer
     Route: 042
     Dates: start: 20230919, end: 20230919
  40. ZIMBERELIMAB [Concomitant]
     Active Substance: ZIMBERELIMAB
     Indication: Colorectal cancer
     Route: 042
     Dates: start: 20231122, end: 20231122
  41. BEVACIZUMAB [Suspect]
     Active Substance: BEVACIZUMAB
     Indication: Colorectal cancer
     Dosage: SINGLE
     Route: 042
     Dates: start: 20221213, end: 20221213
  42. BEVACIZUMAB [Suspect]
     Active Substance: BEVACIZUMAB
     Indication: Colorectal cancer
     Dosage: SINGLE
     Route: 042
     Dates: start: 20221228, end: 20221228
  43. BEVACIZUMAB [Suspect]
     Active Substance: BEVACIZUMAB
     Indication: Colorectal cancer
     Dosage: SINGLE
     Route: 042
     Dates: start: 20230221, end: 20230221
  44. BEVACIZUMAB [Suspect]
     Active Substance: BEVACIZUMAB
     Indication: Colorectal cancer
     Dosage: SINGLE
     Route: 042
     Dates: start: 20230307, end: 20230307
  45. BEVACIZUMAB [Suspect]
     Active Substance: BEVACIZUMAB
     Indication: Colorectal cancer
     Dosage: SINGLE
     Route: 042
     Dates: start: 20230404, end: 20230404
  46. BEVACIZUMAB [Suspect]
     Active Substance: BEVACIZUMAB
     Indication: Colorectal cancer
     Dosage: SINGLE
     Route: 042
     Dates: start: 20230425, end: 20230425
  47. BEVACIZUMAB [Suspect]
     Active Substance: BEVACIZUMAB
     Indication: Colorectal cancer
     Dosage: SINGLE
     Route: 042
     Dates: start: 20230509, end: 20230509
  48. BEVACIZUMAB [Suspect]
     Active Substance: BEVACIZUMAB
     Indication: Colorectal cancer
     Dosage: SINGLE
     Route: 042
     Dates: start: 20230523, end: 20230523
  49. BEVACIZUMAB [Suspect]
     Active Substance: BEVACIZUMAB
     Indication: Colorectal cancer
     Dosage: SINGLE
     Route: 042
     Dates: start: 20230627, end: 20230627
  50. BEVACIZUMAB [Suspect]
     Active Substance: BEVACIZUMAB
     Indication: Colorectal cancer
     Dosage: SINGLE
     Route: 042
     Dates: start: 20230712, end: 20230712
  51. BEVACIZUMAB [Suspect]
     Active Substance: BEVACIZUMAB
     Indication: Colorectal cancer
     Dosage: SINGLE
     Route: 042
     Dates: start: 20230725, end: 20230822
  52. BEVACIZUMAB [Suspect]
     Active Substance: BEVACIZUMAB
     Indication: Colorectal cancer
     Dosage: SINGLE
     Route: 042
     Dates: start: 20230919, end: 20230919
  53. BEVACIZUMAB [Suspect]
     Active Substance: BEVACIZUMAB
     Indication: Colorectal cancer
     Dosage: SINGLE
     Route: 042
     Dates: start: 20231003, end: 20231003
  54. BEVACIZUMAB [Suspect]
     Active Substance: BEVACIZUMAB
     Indication: Colorectal cancer
     Dosage: SINGLE
     Route: 042
     Dates: start: 20231024, end: 20231024
  55. BEVACIZUMAB [Suspect]
     Active Substance: BEVACIZUMAB
     Indication: Colorectal cancer
     Dosage: SINGLE
     Route: 042
     Dates: start: 20231213, end: 20231213
  56. FLUOROURACIL [Suspect]
     Active Substance: FLUOROURACIL
     Indication: Colorectal cancer
     Dosage: SINGLE, IV BOLUS
     Route: 042
     Dates: start: 20221129, end: 20221129
  57. FLUOROURACIL [Suspect]
     Active Substance: FLUOROURACIL
     Indication: Colorectal cancer
     Dosage: SINGLE
     Route: 042
     Dates: start: 20221213, end: 20221213
  58. FLUOROURACIL [Suspect]
     Active Substance: FLUOROURACIL
     Indication: Colorectal cancer
     Dosage: SINGLE, IV BOLUS
     Route: 042
     Dates: start: 20221213, end: 20221213
  59. FLUOROURACIL [Suspect]
     Active Substance: FLUOROURACIL
     Indication: Colorectal cancer
     Dosage: SINGLE
     Route: 042
     Dates: start: 20221228, end: 20221228
  60. FLUOROURACIL [Suspect]
     Active Substance: FLUOROURACIL
     Indication: Colorectal cancer
     Dosage: SINGLE, IV BOLUS
     Route: 042
     Dates: start: 20221228, end: 20221228
  61. FLUOROURACIL [Suspect]
     Active Substance: FLUOROURACIL
     Indication: Colorectal cancer
     Dosage: SINGLE
     Route: 042
     Dates: start: 20230110, end: 20230110
  62. FLUOROURACIL [Suspect]
     Active Substance: FLUOROURACIL
     Indication: Colorectal cancer
     Dosage: SINGLE, IV BOLUS
     Route: 042
     Dates: start: 20230110, end: 20230110
  63. FLUOROURACIL [Suspect]
     Active Substance: FLUOROURACIL
     Indication: Colorectal cancer
     Dosage: SINGLE
     Route: 042
     Dates: start: 20230207, end: 20230207
  64. FLUOROURACIL [Suspect]
     Active Substance: FLUOROURACIL
     Indication: Colorectal cancer
     Dosage: SINGLE, IV BOLUS
     Route: 042
     Dates: start: 20230207, end: 20230207
  65. FLUOROURACIL [Suspect]
     Active Substance: FLUOROURACIL
     Indication: Colorectal cancer
     Dosage: SINGLE
     Route: 042
     Dates: start: 20230221, end: 20230221
  66. FLUOROURACIL [Suspect]
     Active Substance: FLUOROURACIL
     Indication: Colorectal cancer
     Dosage: SINGLE, IV BOLUS
     Route: 042
     Dates: start: 20230221, end: 20230221
  67. FLUOROURACIL [Suspect]
     Active Substance: FLUOROURACIL
     Indication: Colorectal cancer
     Dosage: SINGLE
     Route: 042
     Dates: start: 20230307, end: 20230307
  68. FLUOROURACIL [Suspect]
     Active Substance: FLUOROURACIL
     Indication: Colorectal cancer
     Dosage: SINGLE, IV BOLUS
     Route: 042
     Dates: start: 20230307, end: 20230307
  69. FLUOROURACIL [Suspect]
     Active Substance: FLUOROURACIL
     Indication: Colorectal cancer
     Dosage: SINGLE
     Route: 042
     Dates: start: 20230404, end: 20230404
  70. FLUOROURACIL [Suspect]
     Active Substance: FLUOROURACIL
     Indication: Colorectal cancer
     Dosage: SINGLE, IV BOLUS
     Route: 042
     Dates: start: 20230404, end: 20230404
  71. FLUOROURACIL [Suspect]
     Active Substance: FLUOROURACIL
     Indication: Colorectal cancer
     Dosage: SINGLE
     Route: 042
     Dates: start: 20230425, end: 20230425
  72. FLUOROURACIL [Suspect]
     Active Substance: FLUOROURACIL
     Indication: Colorectal cancer
     Dosage: SINGLE
     Route: 042
     Dates: start: 20230509, end: 20230509
  73. FLUOROURACIL [Suspect]
     Active Substance: FLUOROURACIL
     Indication: Colorectal cancer
     Dosage: SINGLE
     Route: 042
     Dates: start: 20230523, end: 20230523
  74. FLUOROURACIL [Suspect]
     Active Substance: FLUOROURACIL
     Indication: Colorectal cancer
     Dosage: SINGLE
     Route: 042
     Dates: start: 20230627, end: 20230627
  75. FLUOROURACIL [Suspect]
     Active Substance: FLUOROURACIL
     Indication: Colorectal cancer
     Dosage: SINGLE
     Route: 042
     Dates: start: 20230712, end: 20230712
  76. FLUOROURACIL [Suspect]
     Active Substance: FLUOROURACIL
     Indication: Colorectal cancer
     Dosage: SINGLE
     Route: 042
     Dates: start: 20230725, end: 20230725
  77. FLUOROURACIL [Suspect]
     Active Substance: FLUOROURACIL
     Indication: Colorectal cancer
     Dosage: SINGLE
     Route: 042
     Dates: start: 20230809, end: 20230809
  78. FLUOROURACIL [Suspect]
     Active Substance: FLUOROURACIL
     Indication: Colorectal cancer
     Dosage: SINGLE
     Route: 042
     Dates: start: 20230822, end: 20230822
  79. FLUOROURACIL [Suspect]
     Active Substance: FLUOROURACIL
     Indication: Colorectal cancer
     Dosage: SINGLE
     Route: 042
     Dates: start: 20230906, end: 20230906
  80. FLUOROURACIL [Suspect]
     Active Substance: FLUOROURACIL
     Indication: Colorectal cancer
     Dosage: SINGLE
     Route: 042
     Dates: start: 20231213, end: 20231213

REACTIONS (1)
  - Perirectal abscess [Not Recovered/Not Resolved]

NARRATIVE: CASE EVENT DATE: 20240108
